FAERS Safety Report 23336008 (Version 1)
Quarter: 2023Q4

REPORT INFORMATION
  Report Type: Spontaneous
  Country: ES (occurrence: None)
  Receive Date: 20231225
  Receipt Date: 20231225
  Transmission Date: 20240110
  Serious: Yes (Life-Threatening, Hospitalization)
  Sender: FDA-Public Use
  Company Number: 2023A291366

PATIENT
  Age: 63 Year
  Sex: Female

DRUGS (1)
  1. QUETIAPINE [Suspect]
     Active Substance: QUETIAPINE
     Indication: Schizophrenia
     Dosage: QUETIAPINE 100MG 0-0-2
     Route: 048
     Dates: start: 20180926, end: 20231117

REACTIONS (2)
  - Pericardial effusion [Recovered/Resolved with Sequelae]
  - Pleuropericarditis [Recovering/Resolving]

NARRATIVE: CASE EVENT DATE: 20181003
